FAERS Safety Report 18081341 (Version 1)
Quarter: 2020Q3

REPORT INFORMATION
  Report Type: Spontaneous
  Country: CA (occurrence: CA)
  Receive Date: 20200728
  Receipt Date: 20200728
  Transmission Date: 20201103
  Serious: Yes (Other)
  Sender: FDA-Public Use
  Company Number: CA-TEVA-2020-CA-1806361

PATIENT
  Age: 74 Year
  Sex: Male
  Weight: 56 kg

DRUGS (15)
  1. PANTOPRAZOLE [Interacting]
     Active Substance: PANTOPRAZOLE
  2. ROSUVASTATIN. [Interacting]
     Active Substance: ROSUVASTATIN
  3. TRANDOLAPRIL. [Interacting]
     Active Substance: TRANDOLAPRIL
  4. VITAMIN D[COLECALCIFEROL] [Interacting]
     Active Substance: CHOLECALCIFEROL
  5. FLUCONAZOLE. [Suspect]
     Active Substance: FLUCONAZOLE
     Indication: PRODUCT USED FOR UNKNOWN INDICATION
     Dosage: 200 MILLIGRAM DAILY;
     Route: 048
  6. FERROUS SULFATE. [Interacting]
     Active Substance: FERROUS SULFATE
  7. ASA [Interacting]
     Active Substance: ASPIRIN
  8. BISMUTH. [Interacting]
     Active Substance: BISMUTH
  9. METFORMIN [Interacting]
     Active Substance: METFORMIN HYDROCHLORIDE
  10. SENNOSIDES. [Interacting]
     Active Substance: SENNOSIDES
  11. JANUVIA [Interacting]
     Active Substance: SITAGLIPTIN PHOSPHATE
  12. LAX?A?DAY [Interacting]
     Active Substance: POLYETHYLENE GLYCOL 3350
  13. METRONIDAZOLE. [Interacting]
     Active Substance: METRONIDAZOLE
  14. TETRACYCLINE [Interacting]
     Active Substance: TETRACYCLINE
  15. BISOPROLOL [Interacting]
     Active Substance: BISOPROLOL

REACTIONS (1)
  - Drug interaction [Recovered/Resolved]
